FAERS Safety Report 12960236 (Version 1)
Quarter: 2016Q4

REPORT INFORMATION
  Report Type: Spontaneous
  Country: US (occurrence: US)
  Receive Date: 20161121
  Receipt Date: 20161121
  Transmission Date: 20170207
  Serious: No
  Sender: FDA-Public Use
  Company Number: US-ALLERGAN-1653102US

PATIENT
  Sex: Female

DRUGS (1)
  1. POLYTRIM [Suspect]
     Active Substance: POLYMYXIN B SULFATE\TRIMETHOPRIM SULFATE
     Indication: CATARACT OPERATION
     Dosage: UNK
     Route: 047
     Dates: start: 2011, end: 2011

REACTIONS (1)
  - Drug hypersensitivity [Unknown]

NARRATIVE: CASE EVENT DATE: 2011
